FAERS Safety Report 16394170 (Version 2)
Quarter: 2019Q4

REPORT INFORMATION
  Report Type: Spontaneous
  Country: JP (occurrence: JP)
  Receive Date: 20190605
  Receipt Date: 20191010
  Transmission Date: 20200122
  Serious: Yes (Other)
  Sender: FDA-Public Use
  Company Number: JP-PFIZER INC-2019229015

PATIENT
  Age: 11 Year
  Sex: Male
  Weight: 31.6 kg

DRUGS (2)
  1. WYPAX 0.5 [Suspect]
     Active Substance: LORAZEPAM
     Indication: ANXIETY
     Dosage: 0.25 MG, 1X/DAY
     Route: 048
     Dates: start: 20190525, end: 20190525
  2. WYPAX 0.5 [Suspect]
     Active Substance: LORAZEPAM
     Indication: DEPRESSION

REACTIONS (4)
  - Encephalopathy [Recovering/Resolving]
  - Anxiety disorder [Unknown]
  - Product use issue [Unknown]
  - Off label use [Unknown]

NARRATIVE: CASE EVENT DATE: 20190525
